FAERS Safety Report 9382467 (Version 1)
Quarter: 2013Q3

REPORT INFORMATION
  Report Type: Spontaneous
  Country: US (occurrence: US)
  Receive Date: 20130703
  Receipt Date: 20130703
  Transmission Date: 20140515
  Serious: Yes (Other)
  Sender: FDA-Public Use
  Company Number: US-BAYER-2013-080069

PATIENT
  Age: 26 Year
  Sex: Female

DRUGS (3)
  1. YAZ [Suspect]
     Indication: MIGRAINE
     Dosage: UNK
     Dates: start: 200801, end: 201201
  2. YAZ [Suspect]
     Indication: MENSTRUATION IRREGULAR
  3. ADVAIR [Concomitant]
     Route: 045

REACTIONS (11)
  - Cholelithiasis [None]
  - Pain [None]
  - Nausea [None]
  - Vomiting [None]
  - Cholecystitis chronic [None]
  - Dyspepsia [None]
  - Hyperchlorhydria [None]
  - Abdominal distension [None]
  - Constipation [None]
  - Diarrhoea [None]
  - Scar [None]
